FAERS Safety Report 17676384 (Version 1)
Quarter: 2020Q2

REPORT INFORMATION
  Report Type: Spontaneous
  Country: US (occurrence: US)
  Receive Date: 20200416
  Receipt Date: 20200416
  Transmission Date: 20200714
  Serious: Yes (Hospitalization)
  Sender: FDA-Public Use
  Company Number: None

PATIENT
  Sex: Female

DRUGS (22)
  1. ADCIRCA [Concomitant]
     Active Substance: TADALAFIL
  2. ASPIRIN. [Concomitant]
     Active Substance: ASPIRIN
  3. CEPHALEXIN. [Concomitant]
     Active Substance: CEPHALEXIN
  4. OMEPRAZOLE. [Concomitant]
     Active Substance: OMEPRAZOLE
  5. COLACE [Concomitant]
     Active Substance: DOCUSATE SODIUM
  6. FUROSEMIDE. [Concomitant]
     Active Substance: FUROSEMIDE
  7. AMBERISENTAN [Suspect]
     Active Substance: AMBRISENTAN
     Indication: PULMONARY ARTERIAL HYPERTENSION
     Route: 048
     Dates: start: 20191001
  8. NEO/POLY/HC [Concomitant]
     Active Substance: HYDROCORTISONE\NEOMYCIN\POLYMYXIN B SULFATE
  9. FISH OIL [Concomitant]
     Active Substance: FISH OIL
  10. MILK OF MAG [Concomitant]
  11. CRANBERRY. [Concomitant]
     Active Substance: CRANBERRY
  12. CEPHALEXIN. [Concomitant]
     Active Substance: CEPHALEXIN
  13. MAPAP [Concomitant]
     Active Substance: ACETAMINOPHEN
  14. PAROXETINE. [Concomitant]
     Active Substance: PAROXETINE
  15. BUPROPION. [Concomitant]
     Active Substance: BUPROPION
  16. MELOXICAM. [Concomitant]
     Active Substance: MELOXICAM
  17. POTASSIUM [Concomitant]
     Active Substance: POTASSIUM
  18. LEVOTHYROXIN [Concomitant]
     Active Substance: LEVOTHYROXINE
  19. DEPP SEA [Concomitant]
  20. DIVALPROEX [Concomitant]
     Active Substance: DIVALPROEX SODIUM
  21. GAPABENTIN [Concomitant]
  22. QVAR [Concomitant]
     Active Substance: BECLOMETHASONE DIPROPIONATE

REACTIONS (2)
  - Pneumonia [None]
  - Therapy interrupted [None]
